FAERS Safety Report 15324498 (Version 2)
Quarter: 2018Q3

REPORT INFORMATION
  Report Type: Spontaneous
  Country: US (occurrence: US)
  Receive Date: 20180828
  Receipt Date: 20180919
  Transmission Date: 20181010
  Serious: Yes (Life-Threatening, Hospitalization)
  Sender: FDA-Public Use
  Company Number: US-HIKMA PHARMACEUTICALS USA INC.-US-H14001-18-07010

PATIENT
  Age: 73 Year
  Sex: Male

DRUGS (1)
  1. LABETALOL HYDROCHLORIDE. [Suspect]
     Active Substance: LABETALOL HYDROCHLORIDE
     Indication: HYPERTENSION
     Route: 040
     Dates: start: 20180811, end: 20180811

REACTIONS (3)
  - Cardiac arrest [Recovered/Resolved]
  - Bradycardia [Unknown]
  - Hypotension [Unknown]

NARRATIVE: CASE EVENT DATE: 20180811
